FAERS Safety Report 5041742-7 (Version None)
Quarter: 2006Q2

REPORT INFORMATION
  Report Type: 
  Country: None (occurrence: None)
  Receive Date: 20060630
  Receipt Date: 20060620
  Transmission Date: 20061013
  Serious: Yes (Other)
  Sender: FDA-Public Use
  Company Number: 2006029187

PATIENT
  Age: 55 Year
  Sex: Male

DRUGS (5)
  1. NORVASC [Suspect]
     Indication: HEADACHE
     Dosage: 2.5 MG (2.5 MG, 1 IN 1 D), UNKNOWN
     Dates: start: 20060214
  2. CYMBALTA [Concomitant]
  3. LIPITOR [Concomitant]
  4. VITAMINS [Concomitant]
  5. LITHIUM CARBONATE [Concomitant]

REACTIONS (4)
  - CHOKING [None]
  - DYSPHAGIA [None]
  - OESOPHAGEAL SPASM [None]
  - OROPHARYNGITIS FUNGAL [None]
